FAERS Safety Report 6619075-4 (Version None)
Quarter: 2010Q1

REPORT INFORMATION
  Report Type: 
  Country: None (occurrence: None)
  Receive Date: 20100308
  Receipt Date: 20100208
  Transmission Date: 20100710
  Serious: No
  Sender: FDA-Public Use
  Company Number: US-ALLERGAN-1001608US

PATIENT
  Sex: Female

DRUGS (1)
  1. ACZONE [Suspect]
     Indication: ACNE

REACTIONS (1)
  - DIARRHOEA [None]
